FAERS Safety Report 5166617-4 (Version None)
Quarter: 2006Q4

REPORT INFORMATION
  Report Type: 
  Country: None (occurrence: None)
  Receive Date: 20061129
  Receipt Date: 20061114
  Transmission Date: 20070319
  Serious: Yes (Other)
  Sender: FDA-Public Use
  Company Number: 2006RR-04538

PATIENT
  Age: 63 Year
  Sex: Female

DRUGS (3)
  1. METFORMIN HCL [Suspect]
     Indication: DIABETES MELLITUS NON-INSULIN-DEPENDENT
     Dosage: 500 MG, ORAL
     Route: 048
  2. RIMONABANT(RIMONABANT) 20 MG [Suspect]
     Indication: WEIGHT DECREASED
     Dosage: 20 MG, QID
     Dates: start: 20060821, end: 20061004
  3. ZOLPIDEM TARTRATE [Concomitant]

REACTIONS (4)
  - AGITATION [None]
  - DRUG INTERACTION [None]
  - PRURITUS [None]
  - RESTLESSNESS [None]
